FAERS Safety Report 13951655 (Version 2)
Quarter: 2017Q3

REPORT INFORMATION
  Report Type: Report from Study
  Country: DE (occurrence: DE)
  Receive Date: 20170908
  Receipt Date: 20170913
  Transmission Date: 20171128
  Serious: Yes (Hospitalization, Other)
  Sender: FDA-Public Use
  Company Number: DE-BRISTOL-MYERS SQUIBB COMPANY-BMS-2017-078514

PATIENT
  Age: 57 Year
  Sex: Female

DRUGS (1)
  1. ABATACEPT [Suspect]
     Active Substance: ABATACEPT
     Indication: RHEUMATOID ARTHRITIS
     Dosage: 500 MG, Q4WK
     Route: 042

REACTIONS (2)
  - Haemorrhagic erosive gastritis [Recovered/Resolved]
  - Monoclonal gammopathy [Unknown]

NARRATIVE: CASE EVENT DATE: 201707
